FAERS Safety Report 4704912-0 (Version None)
Quarter: 2005Q2

REPORT INFORMATION
  Report Type: 
  Country: None (occurrence: None)
  Receive Date: 20050629
  Receipt Date: 20050629
  Transmission Date: 20051028
  Serious: No
  Sender: FDA-Public Use
  Company Number: None

PATIENT
  Age: 63 Year
  Sex: Male
  Weight: 102.5129 kg

DRUGS (2)
  1. NITROQUICK 0.4 MG (1/150) ETHEX [Suspect]
     Indication: ANGINA PECTORIS
     Dosage: ONE AS NEEDED FOIR CHEST PAIN [SHORT DURATION]
  2. NITROQUICK 0.4 MG (1/150) ETHEX [Suspect]
     Indication: CHEST PAIN
     Dosage: ONE AS NEEDED FOIR CHEST PAIN [SHORT DURATION]

REACTIONS (2)
  - DRUG INEFFECTIVE [None]
  - PHARMACEUTICAL PRODUCT COMPLAINT [None]
